FAERS Safety Report 11937779 (Version 1)
Quarter: 2016Q1

REPORT INFORMATION
  Report Type: Spontaneous
  Country: US (occurrence: None)
  Receive Date: 20160120
  Receipt Date: 20160120
  Transmission Date: 20160526
  Serious: Yes (Life-Threatening, Hospitalization)
  Sender: FDA-Public Use
  Company Number: None

PATIENT
  Age: 45 Year
  Sex: Female
  Weight: 64.41 kg

DRUGS (9)
  1. CARBAMAZEPINE. [Suspect]
     Active Substance: CARBAMAZEPINE
  2. TYLENOL [Concomitant]
     Active Substance: ACETAMINOPHEN
  3. OLANZAPINE. [Concomitant]
     Active Substance: OLANZAPINE
  4. LORAZEPAM. [Concomitant]
     Active Substance: LORAZEPAM
  5. MULTIVITAMIN [Concomitant]
     Active Substance: VITAMINS
  6. BENADRYL [Concomitant]
     Active Substance: DIPHENHYDRAMINE HYDROCHLORIDE
  7. ABILIFY [Concomitant]
     Active Substance: ARIPIPRAZOLE
  8. MILK OF MAGNESIA [Concomitant]
     Active Substance: MAGNESIUM HYDROXIDE
  9. TRAZODONE [Concomitant]
     Active Substance: TRAZODONE HYDROCHLORIDE

REACTIONS (6)
  - Rash morbilliform [None]
  - Rash [None]
  - Hypotension [None]
  - Pruritus [None]
  - Rash maculo-papular [None]
  - Cough [None]

NARRATIVE: CASE EVENT DATE: 20160114
